FAERS Safety Report 7159780-7 (Version None)
Quarter: 2010Q4

REPORT INFORMATION
  Report Type: 
  Country: None (occurrence: None)
  Receive Date: 20101214
  Receipt Date: 20100929
  Transmission Date: 20110411
  Serious: No
  Sender: FDA-Public Use
  Company Number: US-ASTRAZENECA-2010SE46007

PATIENT
  Age: 56 Year
  Sex: Female
  Weight: 102.1 kg

DRUGS (4)
  1. CRESTOR [Suspect]
     Indication: HYPERCHOLESTEROLAEMIA
     Route: 048
     Dates: start: 20100201
  2. CRESTOR [Suspect]
     Route: 048
     Dates: end: 20100501
  3. CRESTOR [Suspect]
     Route: 048
     Dates: start: 20100901
  4. SEROQUEL [Suspect]
     Indication: DEPRESSION
     Route: 048
     Dates: start: 20100601

REACTIONS (2)
  - HYPERCHOLESTEROLAEMIA [None]
  - WEIGHT INCREASED [None]
